FAERS Safety Report 5324863-0 (Version None)
Quarter: 2007Q2

REPORT INFORMATION
  Report Type: 
  Country: None (occurrence: None)
  Receive Date: 20070515
  Receipt Date: 20070511
  Transmission Date: 20071010
  Serious: Yes (Death)
  Sender: FDA-Public Use
  Company Number: US-ELI_LILLY_AND_COMPANY-US200705003137

PATIENT
  Age: 45 Year
  Sex: Male

DRUGS (15)
  1. ZYPREXA [Suspect]
     Indication: IMPULSE-CONTROL DISORDER
     Dosage: 5 MG, EACH EVENING
     Dates: start: 20000101
  2. BACTRIM [Concomitant]
  3. COLACE [Concomitant]
  4. FOLIC ACID [Concomitant]
  5. DITROPAN XL [Concomitant]
  6. PRILOSEC [Concomitant]
  7. CELEXA [Concomitant]
  8. FLUCONAZOLE [Concomitant]
  9. ACYCLOVIR [Concomitant]
  10. GABAPENTIN [Concomitant]
  11. TYLENOL /USA/ [Concomitant]
  12. INTERFERON ALFA [Concomitant]
  13. NAPROSYN [Concomitant]
  14. TYLENOL W/ CODEINE [Concomitant]
  15. EPOETIN NOS [Concomitant]

REACTIONS (1)
  - MULTIPLE MYELOMA [None]
